FAERS Safety Report 7576556-7 (Version None)
Quarter: 2011Q2

REPORT INFORMATION
  Report Type: 
  Country: None (occurrence: None)
  Receive Date: 20110628
  Receipt Date: 20110608
  Transmission Date: 20111010
  Serious: Yes (Other)
  Sender: FDA-Public Use
  Company Number: US-BAYER-201041702NA

PATIENT
  Age: 53 Year
  Sex: Male
  Weight: 132 kg

DRUGS (13)
  1. TRASYLOL [Suspect]
     Indication: ATRIAL SEPTAL DEFECT REPAIR
  2. ACETYLSALICYLIC ACID SRT [Concomitant]
     Dosage: UNK UNK, QD
  3. ACETAMINOPHEN [Concomitant]
  4. DOBUTAMINE HCL [Concomitant]
     Dosage: 11 MCG/KG/MIN
     Route: 042
     Dates: start: 20050217
  5. HEPARIN [Concomitant]
     Dosage: 37,000 UNITS
     Route: 042
     Dates: start: 20050217
  6. PROTONIX [Concomitant]
     Dosage: UNK UNK, QD
  7. FENTANYL [Concomitant]
     Dosage: 5 CC
     Route: 042
     Dates: start: 20050217
  8. LIPITOR [Concomitant]
     Dosage: UNK UNK, QD
  9. COUMADIN [Concomitant]
  10. TRASYLOL [Suspect]
     Indication: CORONARY ARTERY BYPASS
     Dosage: 200 CC BOLUS FOLLOWED WITH INFUSION AT 50CC/HR
     Route: 042
     Dates: start: 20050217, end: 20050217
  11. TRASYLOL [Suspect]
     Indication: MITRAL VALVE REPAIR
  12. ANCEF [Concomitant]
     Indication: PROPHYLAXIS
     Dosage: 2 G, UNK
     Route: 042
     Dates: start: 20050216
  13. ANCEF [Concomitant]
     Dosage: 1 G, UNK
     Route: 042
     Dates: start: 20050217

REACTIONS (10)
  - STRESS [None]
  - UNEVALUABLE EVENT [None]
  - FEAR [None]
  - INJURY [None]
  - ANXIETY [None]
  - PAIN [None]
  - RENAL FAILURE [None]
  - RENAL IMPAIRMENT [None]
  - RENAL INJURY [None]
  - EMOTIONAL DISTRESS [None]
